FAERS Safety Report 14985021 (Version 3)
Quarter: 2019Q4

REPORT INFORMATION
  Report Type: Spontaneous
  Country: US (occurrence: US)
  Receive Date: 20180607
  Receipt Date: 20191014
  Transmission Date: 20200122
  Serious: Yes (Hospitalization, Other)
  Sender: FDA-Public Use
  Company Number: US-ELI_LILLY_AND_COMPANY-US201806000473

PATIENT
  Sex: Male
  Weight: 102 kg

DRUGS (4)
  1. VIAGRA [Suspect]
     Active Substance: SILDENAFIL CITRATE
     Dosage: 50 MG, OTHER (1-2 TIME PER WEEK)
     Route: 065
     Dates: start: 20110329, end: 20150916
  2. VIAGRA [Suspect]
     Active Substance: SILDENAFIL CITRATE
     Indication: ERECTILE DYSFUNCTION
     Dosage: 100 MG, OTHER (1-2 TIME PER WEEK)
     Route: 065
     Dates: start: 20091023, end: 20130911
  3. IMBRUVICA [Concomitant]
     Active Substance: IBRUTINIB
     Indication: CHRONIC LYMPHOCYTIC LEUKAEMIA
     Dosage: UNK
     Dates: start: 201802
  4. CIALIS [Suspect]
     Active Substance: TADALAFIL
     Indication: ERECTILE DYSFUNCTION
     Dosage: 20 MG, OTHER (1 TO 2 TIMES PER WEEK)
     Route: 065
     Dates: start: 20140731, end: 20141231

REACTIONS (5)
  - Lymphoedema [Unknown]
  - Basal cell carcinoma [Recovered/Resolved]
  - Metastases to lymph nodes [Unknown]
  - Squamous cell carcinoma [Recovered/Resolved]
  - Malignant melanoma stage II [Unknown]

NARRATIVE: CASE EVENT DATE: 2015
